FAERS Safety Report 14944980 (Version 2)
Quarter: 2018Q2

REPORT INFORMATION
  Report Type: Spontaneous
  Country: US (occurrence: US)
  Receive Date: 20180529
  Receipt Date: 20180605
  Transmission Date: 20180711
  Serious: Yes (Hospitalization, Other)
  Sender: FDA-Public Use
  Company Number: US-009507513-1805USA010336

PATIENT
  Age: 15 Year
  Sex: Female

DRUGS (5)
  1. PROVENTIL [Suspect]
     Active Substance: ALBUTEROL
     Indication: ASTHMA
     Dosage: UNK, PRN
     Route: 055
  2. LORATADINE. [Concomitant]
     Active Substance: LORATADINE
     Indication: ASTHMA
     Dosage: UNK
  3. SINGULAIR [Concomitant]
     Active Substance: MONTELUKAST SODIUM
     Indication: ASTHMA
     Dosage: 5 MG, QD
     Route: 048
  4. PROVENTIL [Suspect]
     Active Substance: ALBUTEROL
     Dosage: UNK; CONTINUOUS
     Route: 055
  5. FLUTICASONE PROPIONATE (+) FORMOTEROL FUMARATE [Concomitant]
     Indication: ASTHMA
     Dosage: 2 PUFFS, BID

REACTIONS (1)
  - Drug ineffective [Unknown]
